FAERS Safety Report 8246258-2 (Version None)
Quarter: 2012Q1

REPORT INFORMATION
  Report Type: 
  Country: None (occurrence: None)
  Receive Date: 20120330
  Receipt Date: 20120322
  Transmission Date: 20120608
  Serious: Yes (Hospitalization)
  Sender: FDA-Public Use
  Company Number: US-BAYER-2011-081851

PATIENT
  Age: 42 Year
  Sex: Female

DRUGS (3)
  1. NAPROXEN [Concomitant]
     Route: 048
  2. YAZ [Suspect]
     Indication: CONTRACEPTION
     Dosage: UNK
     Dates: start: 20070501
  3. FERROUS SULFATE TAB [Concomitant]
     Indication: ANAEMIA
     Dosage: UNK UNK, BID
     Route: 048

REACTIONS (10)
  - TRANSIENT ISCHAEMIC ATTACK [None]
  - PAIN IN EXTREMITY [None]
  - ASTHENIA [None]
  - HEADACHE [None]
  - CEREBROVASCULAR ACCIDENT [None]
  - CEREBRAL INFARCTION [None]
  - PAIN [None]
  - THROMBOSIS [None]
  - CHEST PAIN [None]
  - NECK PAIN [None]
